FAERS Safety Report 21832637 (Version 1)
Quarter: 2023Q1

REPORT INFORMATION
  Report Type: Spontaneous
  Country: US (occurrence: US)
  Receive Date: 20230106
  Receipt Date: 20230106
  Transmission Date: 20230418
  Serious: No
  Sender: FDA-Public Use
  Company Number: US-ALLERGAN-2236008US

PATIENT
  Sex: Female

DRUGS (2)
  1. QULIPTA [Suspect]
     Active Substance: ATOGEPANT
     Indication: Product used for unknown indication
     Dosage: UNK
  2. UBRELVY [Concomitant]
     Active Substance: UBROGEPANT
     Dosage: UNK, PRN

REACTIONS (4)
  - Therapy interrupted [Unknown]
  - Dizziness [Unknown]
  - Nausea [Unknown]
  - Migraine [Recovered/Resolved]
